FAERS Safety Report 9498344 (Version 1)
Quarter: 2013Q3

REPORT INFORMATION
  Report Type: Spontaneous
  Country: FR (occurrence: FR)
  Receive Date: 20130904
  Receipt Date: 20130904
  Transmission Date: 20140515
  Serious: Yes (Hospitalization)
  Sender: FDA-Public Use
  Company Number: FR-PFIZER INC-2013249289

PATIENT
  Age: 49 Year
  Sex: Female

DRUGS (10)
  1. SOLU-MEDROL [Suspect]
     Indication: PREMEDICATION
     Dosage: 50 MG, SINGLE
     Route: 042
     Dates: start: 20130625, end: 20130625
  2. SOLU-MEDROL [Suspect]
     Dosage: 50 MG, SINGLE
     Route: 042
     Dates: start: 20130710, end: 20130710
  3. REMICADE [Suspect]
     Indication: CROHN^S DISEASE
     Dosage: 5 MG/KG, SINGLE
     Route: 042
     Dates: start: 20130625, end: 20130625
  4. REMICADE [Suspect]
     Dosage: 5 MG/KG, SINGLE
     Dates: start: 20130710, end: 20130710
  5. VENOFER [Suspect]
     Indication: IRON DEFICIENCY ANAEMIA
     Dosage: 200 MG, SINGLE
     Route: 042
     Dates: start: 20130710, end: 20130710
  6. PYOSTACINE [Concomitant]
     Indication: FURUNCLE
     Dosage: 2 G A DAY
     Route: 048
     Dates: start: 20130601, end: 20130610
  7. STILNOX [Concomitant]
     Indication: INITIAL INSOMNIA
     Dosage: 10MG IN THE EVENING
     Route: 048
     Dates: start: 2013
  8. IXPRIM [Concomitant]
     Indication: ABDOMINAL PAIN
     Dosage: UNK
     Route: 048
     Dates: start: 2012
  9. MOPRAL [Concomitant]
     Dosage: 20 MG DAILY
     Route: 048
     Dates: start: 2013
  10. HUMIRA [Concomitant]
     Indication: CROHN^S DISEASE
     Dosage: UNK
     Dates: start: 2008

REACTIONS (1)
  - Acute coronary syndrome [Recovered/Resolved]
